FAERS Safety Report 17019962 (Version 2)
Quarter: 2020Q1

REPORT INFORMATION
  Report Type: Report from Study
  Country: US (occurrence: US)
  Receive Date: 20191112
  Receipt Date: 20200110
  Transmission Date: 20200409
  Serious: Yes (Other)
  Sender: FDA-Public Use
  Company Number: NVSC2019US032032

PATIENT
  Age: 75 Year
  Sex: Female
  Weight: 70.9 kg

DRUGS (2)
  1. AFINITOR [Suspect]
     Active Substance: EVEROLIMUS
     Indication: ENDOMETRIAL CANCER
     Dosage: 5 MG
     Route: 048
     Dates: start: 20190501, end: 20190530
  2. LENVATINIB [Concomitant]
     Active Substance: LENVATINIB
     Indication: ENDOMETRIAL CANCER
     Dosage: 20 MG
     Route: 048
     Dates: start: 20190501, end: 20190530

REACTIONS (5)
  - Suicidal ideation [Recovered/Resolved]
  - Crying [Unknown]
  - Feeding disorder [Unknown]
  - Sleep disorder [Unknown]
  - Personality change [Recovered/Resolved]

NARRATIVE: CASE EVENT DATE: 20190514
